FAERS Safety Report 12829689 (Version 1)
Quarter: 2016Q4

REPORT INFORMATION
  Report Type: Spontaneous
  Country: US (occurrence: US)
  Receive Date: 20161007
  Receipt Date: 20161007
  Transmission Date: 20170207
  Serious: No
  Sender: FDA-Public Use
  Company Number: US-SA-2016SA122381

PATIENT
  Age: 67 Year
  Sex: Female

DRUGS (21)
  1. CARBAMAZEPINE. [Concomitant]
     Active Substance: CARBAMAZEPINE
  2. FLONASE [Concomitant]
     Active Substance: FLUTICASONE PROPIONATE
  3. MONTELUKAST [Concomitant]
     Active Substance: MONTELUKAST SODIUM
  4. LORAZEPAM. [Concomitant]
     Active Substance: LORAZEPAM
  5. COLESTYRAMINE [Concomitant]
     Active Substance: CHOLESTYRAMINE
  6. APAP W/CODEINE [Concomitant]
     Active Substance: ACETAMINOPHEN\CODEINE PHOSPHATE
  7. CRESTOR [Concomitant]
     Active Substance: ROSUVASTATIN CALCIUM
  8. HYDROCODONE BITARTRATE AND ACETAMINOPHEN [Concomitant]
     Active Substance: ACETAMINOPHEN\HYDROCODONE BITARTRATE
  9. ATENOLOL. [Concomitant]
     Active Substance: ATENOLOL
  10. MIRTAZAPINE. [Concomitant]
     Active Substance: MIRTAZAPINE
  11. TOLTERODINE [Concomitant]
     Active Substance: TOLTERODINE
  12. GLIPIZIDE. [Concomitant]
     Active Substance: GLIPIZIDE
  13. NOVOLOG [Concomitant]
     Active Substance: INSULIN ASPART
  14. AUBAGIO [Suspect]
     Active Substance: TERIFLUNOMIDE
     Indication: MULTIPLE SCLEROSIS
     Route: 048
  15. ATORVASTATIN [Concomitant]
     Active Substance: ATORVASTATIN
  16. ONDANSETRON [Concomitant]
     Active Substance: ONDANSETRON
  17. GABAPENTIN. [Concomitant]
     Active Substance: GABAPENTIN
  18. LORATADINE. [Concomitant]
     Active Substance: LORATADINE
  19. TEGRETOL [Concomitant]
     Active Substance: CARBAMAZEPINE
  20. VENALEX [Concomitant]
  21. XARELTO [Concomitant]
     Active Substance: RIVAROXABAN

REACTIONS (4)
  - Diarrhoea [Not Recovered/Not Resolved]
  - Alopecia [Not Recovered/Not Resolved]
  - Headache [Not Recovered/Not Resolved]
  - Decreased appetite [Not Recovered/Not Resolved]
